FAERS Safety Report 5287146-3 (Version None)
Quarter: 2007Q1

REPORT INFORMATION
  Report Type: 
  Country: None (occurrence: None)
  Receive Date: 20070116
  Receipt Date: 20061014
  Transmission Date: 20070707
  Serious: No
  Sender: FDA-Public Use
  Company Number: 2006SP003672

PATIENT
  Age: 63 Year
  Sex: Male
  Weight: 97.977 kg

DRUGS (6)
  1. LUNESTA [Suspect]
     Indication: INSOMNIA
     Dosage: 3 MG, 1X, ORAL
     Route: 048
     Dates: start: 20061011, end: 20061011
  2. ALLOPURINOL [Concomitant]
  3. CRESTOR [Concomitant]
  4. ACETYLSALICYLIC ACID SRT [Concomitant]
  5. VITAMIN CAP [Concomitant]
  6. COENZYME Q10 [Concomitant]

REACTIONS (3)
  - DRUG INEFFECTIVE [None]
  - DYSGEUSIA [None]
  - INSOMNIA [None]
